FAERS Safety Report 7459512-9 (Version None)
Quarter: 2011Q2

REPORT INFORMATION
  Report Type: 
  Country: None (occurrence: None)
  Receive Date: 20110505
  Receipt Date: 20110428
  Transmission Date: 20111010
  Serious: Yes (Death, Hospitalization, Other)
  Sender: FDA-Public Use
  Company Number: DE-GENZYME-CAMP-1001107

PATIENT
  Sex: Male
  Weight: 67 kg

DRUGS (10)
  1. PANTOZOL [Concomitant]
     Indication: PRODUCT USED FOR UNKNOWN INDICATION
     Dosage: 40 MG, QD
     Route: 048
     Dates: start: 20100917, end: 20101129
  2. ACICLOVIR [Concomitant]
     Dosage: 800 MG X 5
     Route: 048
  3. CAMPATH [Suspect]
     Indication: CHRONIC LYMPHOCYTIC LEUKAEMIA
     Dosage: 30 MG, Q3D
     Route: 058
     Dates: start: 20100917, end: 20101019
  4. ACICLOVIR [Concomitant]
     Indication: PRODUCT USED FOR UNKNOWN INDICATION
     Dosage: 400 MG, TID
     Route: 065
     Dates: start: 20100917, end: 20101125
  5. COTRIM FORTE EU RHO [Concomitant]
     Indication: PRODUCT USED FOR UNKNOWN INDICATION
     Dosage: 870 UNK, UNK
     Route: 065
     Dates: start: 20100920, end: 20101125
  6. COTRIM FORTE EU RHO [Concomitant]
     Dosage: UNK
     Route: 048
  7. CONCOR [Concomitant]
     Indication: PRODUCT USED FOR UNKNOWN INDICATION
     Dosage: UNK
     Route: 048
  8. DEXAMETHASONE [Suspect]
     Indication: CHRONIC LYMPHOCYTIC LEUKAEMIA
     Dosage: 40 MG, QD
     Route: 048
     Dates: start: 20100917, end: 20101019
  9. PEGFILGRASTIM [Suspect]
     Indication: NEUTROPENIA
     Dosage: 6 MG, QD
     Route: 058
     Dates: start: 20100917, end: 20100929
  10. ISONIAZID [Concomitant]
     Indication: PRODUCT USED FOR UNKNOWN INDICATION
     Dosage: 300 MG, UNK
     Route: 048
     Dates: start: 20100917, end: 20101126

REACTIONS (5)
  - ADENOVIRUS INFECTION [None]
  - PANCYTOPENIA [None]
  - RESPIRATORY FAILURE [None]
  - MULTI-ORGAN FAILURE [None]
  - SEPSIS [None]
